FAERS Safety Report 6619218-2 (Version None)
Quarter: 2010Q1

REPORT INFORMATION
  Report Type: 
  Country: None (occurrence: None)
  Receive Date: 20100308
  Receipt Date: 20100304
  Transmission Date: 20100710
  Serious: Yes (Disabling)
  Sender: FDA-Public Use
  Company Number: DE-MERCK-1003DEU00019

PATIENT
  Age: 36 Year
  Sex: Male

DRUGS (4)
  1. ZETIA [Suspect]
     Route: 065
  2. ROSUVASTATIN CALCIUM [Suspect]
     Route: 048
  3. FLUVASTATIN SODIUM [Concomitant]
     Route: 065
  4. [THERAPY UNSPECIFIED] [Concomitant]
     Route: 065

REACTIONS (7)
  - BLOOD CREATINE PHOSPHOKINASE INCREASED [None]
  - CIRCADIAN RHYTHM SLEEP DISORDER [None]
  - DIZZINESS [None]
  - GASTRITIS [None]
  - GASTROINTESTINAL PAIN [None]
  - INSOMNIA [None]
  - MYALGIA [None]
